FAERS Safety Report 7868238-9 (Version None)
Quarter: 2011Q4

REPORT INFORMATION
  Report Type: 
  Country: None (occurrence: None)
  Receive Date: 20111028
  Receipt Date: 20101210
  Transmission Date: 20120403
  Serious: Yes (Other)
  Sender: FDA-Public Use
  Company Number: US-AMGEN-USASP2010008734

PATIENT
  Age: 64 Year
  Sex: Female

DRUGS (1)
  1. ENBREL [Suspect]
     Indication: RHEUMATOID ARTHRITIS
     Dosage: 50 MG, QWK
     Dates: start: 20101210

REACTIONS (8)
  - DYSGEUSIA [None]
  - PARAESTHESIA [None]
  - PILOERECTION [None]
  - HEADACHE [None]
  - FATIGUE [None]
  - DIZZINESS [None]
  - FEELING COLD [None]
  - INJECTION SITE PAIN [None]
